FAERS Safety Report 5811024-1 (Version None)
Quarter: 2008Q3

REPORT INFORMATION
  Report Type: 
  Country: None (occurrence: None)
  Receive Date: 20080710
  Receipt Date: 20080701
  Transmission Date: 20090109
  Serious: Yes (Other)
  Sender: FDA-Public Use
  Company Number: 2008JP003151

PATIENT
  Sex: Female

DRUGS (1)
  1. PROTOPIC [Suspect]
     Indication: ECZEMA
     Dosage: 0.03 %, TOPICAL
     Route: 061

REACTIONS (2)
  - KAPOSI'S VARICELLIFORM ERUPTION [None]
  - NO THERAPEUTIC RESPONSE [None]
